FAERS Safety Report 8829261 (Version 2)
Quarter: 2012Q4

REPORT INFORMATION
  Report Type: 
  Country: BR (occurrence: BR)
  Receive Date: 20121009
  Receipt Date: 20121015
  Transmission Date: 20130627
  Serious: Yes (Death, Hospitalization, Other)
  Sender: FDA-Public Use
  Company Number: BR-AMGEN-BRASP2008000240

PATIENT
  Sex: Female

DRUGS (5)
  1. ENBREL [Suspect]
     Indication: PSORIATIC ARTHROPATHY
     Dosage: UNK
     Dates: start: 2008
  2. TRILAX [Concomitant]
     Indication: ARTHRITIS
     Dosage: UNK
  3. CORTISONE [Concomitant]
     Indication: ARTHRITIS
     Dosage: UNK
  4. DIPYRONE [Concomitant]
     Indication: ARTHRITIS
     Dosage: UNK
  5. OMEPRAZOLE [Concomitant]
     Indication: ARTHRITIS
     Dosage: UNK

REACTIONS (5)
  - Pulmonary embolism [Fatal]
  - Respiratory arrest [Fatal]
  - Ulcer haemorrhage [Unknown]
  - Gastric ulcer [Unknown]
  - Herpes virus infection [Unknown]
